FAERS Safety Report 4401366-9 (Version None)
Quarter: 2004Q3

REPORT INFORMATION
  Report Type: 
  Country: None (occurrence: None)
  Receive Date: 20040907
  Receipt Date: 20040329
  Transmission Date: 20050211
  Serious: Yes (Hospitalization)
  Sender: FDA-Public Use
  Company Number: US-BRISTOL-MYERS SQUIBB COMPANY-12544292

PATIENT
  Age: 60 Year
  Sex: Female
  Weight: 63 kg

DRUGS (4)
  1. COUMADIN [Suspect]
     Indication: PHLEBITIS
     Route: 048
  2. SYNTHROID [Concomitant]
  3. MULTIVITAMIN [Concomitant]
  4. EYE DROPS [Concomitant]

REACTIONS (1)
  - THROMBOSIS [None]
